FAERS Safety Report 8836642 (Version 1)
Quarter: 2012Q4

REPORT INFORMATION
  Report Type: 
  Country: GB (occurrence: None)
  Receive Date: 20121009
  Receipt Date: 20121009
  Transmission Date: 20130627
  Serious: Yes (Other)
  Sender: FDA-Public Use
  Company Number: GB-MACLEODS PHARMA-000013

PATIENT
  Age: 58 Year
  Sex: Female

DRUGS (2)
  1. AMLODIPINE (AMLODIPINE) [Suspect]
     Indication: DRUG USE FOR UNKNOWN INDICATION
  2. BENDROFLUAZIDE (BENDROFLUAZIDE) [Concomitant]

REACTIONS (1)
  - Linear IgA disease [None]
